FAERS Safety Report 9372032 (Version 3)
Quarter: 2013Q4

REPORT INFORMATION
  Report Type: Spontaneous
  Country: FR (occurrence: FR)
  Receive Date: 20130627
  Receipt Date: 20131023
  Transmission Date: 20140711
  Serious: Yes (Hospitalization)
  Sender: FDA-Public Use
  Company Number: FR-009507513-1306FRA009668

PATIENT
  Age: 85 Year
  Sex: Female

DRUGS (6)
  1. JANUVIA [Suspect]
     Route: 048
  2. FUROSEMIDE [Suspect]
     Indication: CARDIAC FAILURE
     Dosage: 4 DF, QD
     Route: 048
  3. AMLODIPINE [Suspect]
     Dosage: UNK
     Route: 048
  4. DIFFU-K [Suspect]
     Route: 048
  5. LYSANXIA [Suspect]
     Dosage: UNK
     Route: 048
     Dates: end: 201303
  6. NOVO-NORM [Suspect]
     Dosage: UNK
     Route: 048
     Dates: end: 201304

REACTIONS (2)
  - Cardiac failure [Recovered/Resolved]
  - Somnolence [Recovered/Resolved]
